FAERS Safety Report 7049574-5 (Version None)
Quarter: 2010Q4

REPORT INFORMATION
  Report Type: 
  Country: None (occurrence: None)
  Receive Date: 20101018
  Receipt Date: 20101005
  Transmission Date: 20110411
  Serious: Yes (Hospitalization, Other)
  Sender: FDA-Public Use
  Company Number: JP-BAYER-200832568GPV

PATIENT
  Age: 53 Year
  Sex: Male

DRUGS (11)
  1. ASPIRIN [Suspect]
     Indication: ANTIPLATELET THERAPY
     Route: 048
     Dates: start: 20081009, end: 20081128
  2. MICARDIS [Suspect]
     Indication: HYPERTENSION
     Route: 048
     Dates: start: 20081009, end: 20081128
  3. GASTER [Suspect]
     Indication: GASTRITIS
     Route: 048
     Dates: start: 20081009, end: 20081128
  4. LASIX [Suspect]
     Indication: PROPHYLAXIS
     Route: 048
     Dates: start: 20081009, end: 20081128
  5. ALDACTONE [Suspect]
     Indication: PROPHYLAXIS
     Route: 048
     Dates: start: 20081009, end: 20081128
  6. HERBESSER [Suspect]
     Indication: HYPERTENSION
     Route: 048
     Dates: start: 20081009, end: 20081128
  7. ITOROL [Suspect]
     Indication: PRODUCT USED FOR UNKNOWN INDICATION
     Route: 048
     Dates: start: 20081009, end: 20081128
  8. MAGMITT [Suspect]
     Indication: CONSTIPATION
     Route: 048
     Dates: start: 20081009, end: 20081128
  9. DEPAS [Suspect]
     Indication: ANXIETY
     Route: 048
     Dates: start: 20081009, end: 20081128
  10. LIPITOR [Suspect]
     Indication: LIPIDS DECREASED
     Route: 048
     Dates: start: 20091009, end: 20091128
  11. WARFARIN SODIUM [Suspect]
     Indication: ANTICOAGULANT THERAPY
     Route: 048
     Dates: start: 20081009, end: 20081128

REACTIONS (1)
  - LIVER DISORDER [None]
